FAERS Safety Report 19320528 (Version 1)
Quarter: 2021Q2

REPORT INFORMATION
  Report Type: Spontaneous
  Country: US (occurrence: US)
  Receive Date: 20210527
  Receipt Date: 20210527
  Transmission Date: 20210717
  Serious: No
  Sender: FDA-Public Use
  Company Number: US-BIOMARINAP-US-2021-136667

PATIENT
  Sex: Male
  Weight: 29.3 kg

DRUGS (1)
  1. KUVAN [Suspect]
     Active Substance: SAPROPTERIN DIHYDROCHLORIDE
     Indication: PHENYLKETONURIA
     Dosage: 300 MILLIGRAM, QD
     Route: 048

REACTIONS (3)
  - Attention deficit hyperactivity disorder [Unknown]
  - Anxiety [Unknown]
  - Learning disorder [Unknown]
